FAERS Safety Report 20071814 (Version 2)
Quarter: 2022Q1

REPORT INFORMATION
  Report Type: Other
  Country: US (occurrence: None)
  Receive Date: 20211116
  Receipt Date: 20220215
  Transmission Date: 20220424
  Serious: Yes (Disabling)
  Sender: FDA-Public Use
  Company Number: US-ROCHE-2955840

PATIENT
  Age: 73 Year
  Sex: Male

DRUGS (1)
  1. ESBRIET [Suspect]
     Active Substance: PIRFENIDONE
     Indication: Idiopathic pulmonary fibrosis
     Dosage: TAKING 2 CAPSULES (267MG EACH) THREE TIMES A DAY WITH MEALS
     Route: 048
     Dates: start: 201309, end: 20210924

REACTIONS (3)
  - Platelet count decreased [Unknown]
  - Blood bilirubin increased [Unknown]
  - Cough [Unknown]

NARRATIVE: CASE EVENT DATE: 20210924
